FAERS Safety Report 24243419 (Version 1)
Quarter: 2024Q3

REPORT INFORMATION
  Report Type: Spontaneous
  Country: CN (occurrence: CN)
  Receive Date: 20240823
  Receipt Date: 20240823
  Transmission Date: 20241016
  Serious: Yes (Hospitalization, Other)
  Sender: BAXTER
  Company Number: None

PATIENT
  Age: 65 Year
  Sex: Female
  Weight: 60 kg

DRUGS (4)
  1. CYCLOPHOSPHAMIDE [Suspect]
     Active Substance: CYCLOPHOSPHAMIDE
     Indication: Breast cancer female
     Dosage: 0.9 G, ONE TIME IN EVERY 21 DAYS, DILUTED WITH 100 ML OF 0.9% SODIUM CHLORIDE
     Route: 041
     Dates: start: 20240722, end: 20240723
  2. SODIUM CHLORIDE [Suspect]
     Active Substance: SODIUM CHLORIDE
     Indication: Medication dilution
     Dosage: (0.9%) 100 ML, ONE TIME IN EVERY 21 DAYS, USED TO DILUTE WITH 0.9 G OF CYCLOPHOSPHAMIDE
     Route: 041
     Dates: start: 20240722, end: 20240723
  3. SODIUM CHLORIDE [Suspect]
     Active Substance: SODIUM CHLORIDE
     Dosage: (0.9%) 100 ML, ONE TIME IN EVERY 21 DAYS, USED TO DILUTE WITH 400 MG OF PACLITAXEL FOR INJECTION (AL
     Route: 041
     Dates: start: 20240722, end: 20240722
  4. PACLITAXEL [Suspect]
     Active Substance: PACLITAXEL
     Indication: Breast cancer female
     Dosage: 400 MG, ONE TIME IN EVERY 21 DAYS, DILUTED WITH 100 ML OF 0.9% SODIUM CHLORIDE, (QILU RUIBEI)
     Route: 041
     Dates: start: 20240722, end: 20240722

REACTIONS (2)
  - Myelosuppression [Recovering/Resolving]
  - Cytopenia [Recovering/Resolving]

NARRATIVE: CASE EVENT DATE: 20240728
